FAERS Safety Report 4847956-0 (Version None)
Quarter: 2005Q4

REPORT INFORMATION
  Report Type: 
  Country: None (occurrence: None)
  Receive Date: 20051206
  Receipt Date: 20051119
  Transmission Date: 20060501
  Serious: Yes (Death)
  Sender: FDA-Public Use
  Company Number: US200511002492

PATIENT
  Age: 62 Year
  Sex: Female

DRUGS (2)
  1. XIGRIS [Suspect]
     Indication: SEPSIS
  2. NOREPINEPHRINE BITARTRATE [Concomitant]

REACTIONS (1)
  - DEATH [None]
